FAERS Safety Report 10245383 (Version 1)
Quarter: 2014Q2

REPORT INFORMATION
  Report Type: Spontaneous
  Country: US (occurrence: US)
  Receive Date: 20140618
  Receipt Date: 20140618
  Transmission Date: 20141212
  Serious: No
  Sender: FDA-Public Use
  Company Number: US-GILEAD-2014-0105469

PATIENT
  Sex: Male

DRUGS (2)
  1. ATRIPLA [Suspect]
     Indication: HIV INFECTION
     Dosage: 1 DF, Q2-3DAYS
     Route: 065
  2. ATRIPLA [Suspect]
     Dosage: 1 DF, QD
     Route: 065

REACTIONS (1)
  - Intentional product misuse [Recovered/Resolved]
